FAERS Safety Report 4512013-X (Version None)
Quarter: 2004Q4

REPORT INFORMATION
  Report Type: 
  Country: None (occurrence: None)
  Receive Date: 20041129
  Receipt Date: 20040721
  Transmission Date: 20050328
  Serious: Yes (Hospitalization, Other)
  Sender: FDA-Public Use
  Company Number: US-BRISTOL-MYERS SQUIBB COMPANY-12647335

PATIENT
  Age: 29 Year
  Sex: Male
  Weight: 88 kg

DRUGS (6)
  1. SUSTIVA [Suspect]
     Indication: HIV INFECTION
     Dosage: PRESCRIBED AT 600 MG DAILY, TOOK 1200 MG ON 17-JUL-2004
     Route: 048
     Dates: start: 20040703
  2. SOMA [Suspect]
  3. XANAX [Suspect]
     Dosage: PRESCRIBED AT 25 MG, TOOK 50 MG ON 17-JUL-2004
  4. EPIVIR [Suspect]
  5. VIREAD [Suspect]
  6. LOMOTIL [Suspect]

REACTIONS (5)
  - ACCIDENTAL OVERDOSE [None]
  - AGGRESSION [None]
  - CONVULSION [None]
  - MEDICATION ERROR [None]
  - PSYCHOTIC DISORDER [None]
